FAERS Safety Report 25919766 (Version 1)
Quarter: 2025Q4

REPORT INFORMATION
  Report Type: Spontaneous
  Country: US (occurrence: US)
  Receive Date: 20251014
  Receipt Date: 20251014
  Transmission Date: 20260118
  Serious: No
  Sender: BOTANIX PHARMACEUTICALS
  Company Number: US-BOTANIX PHARMACEUTICALS-2025BOT00299

PATIENT
  Sex: Female

DRUGS (3)
  1. SOFDRA [Suspect]
     Active Substance: SOFPIRONIUM BROMIDE
     Indication: Hyperhidrosis
     Dosage: UNK, USING OFF LABEL ON BACK AREA
     Route: 061
  2. SOFDRA [Suspect]
     Active Substance: SOFPIRONIUM BROMIDE
     Dosage: USE AS DIRECTED FOR PAH
     Route: 061
  3. UNSPECIFIED INGREDIENT [Concomitant]
     Active Substance: UNSPECIFIED INGREDIENT

REACTIONS (5)
  - Epileptic aura [Recovered/Resolved]
  - Dry mouth [Recovered/Resolved]
  - Vision blurred [Recovered/Resolved]
  - Application site irritation [Recovered/Resolved]
  - Off label use [Recovered/Resolved]
